FAERS Safety Report 10400255 (Version 2)
Quarter: 2014Q3

REPORT INFORMATION
  Report Type: Spontaneous
  Country: RU (occurrence: RU)
  Receive Date: 20140821
  Receipt Date: 20140918
  Transmission Date: 20150326
  Serious: Yes (Life-Threatening, Hospitalization, Disabling, Other)
  Sender: FDA-Public Use
  Company Number: RU-009507513-1408RUS008850

PATIENT
  Age: 40 Year
  Sex: Female
  Weight: 58 kg

DRUGS (1)
  1. IMPLANON [Suspect]
     Active Substance: ETONOGESTREL
     Indication: CONTRACEPTION
     Dosage: UNK
     Route: 058
     Dates: start: 20140314, end: 2014

REACTIONS (11)
  - Adenomyosis [Unknown]
  - Uterine scar [Unknown]
  - Uterine leiomyoma [Unknown]
  - Uterine haemorrhage [Recovered/Resolved]
  - Cervix disorder [Unknown]
  - Salpingitis [Unknown]
  - Transfusion [Recovered/Resolved]
  - Metrorrhagia [Unknown]
  - Hysterectomy [Recovered/Resolved]
  - Haemorrhage [Unknown]
  - Haemorrhagic anaemia [Recovered/Resolved]

NARRATIVE: CASE EVENT DATE: 201406
